FAERS Safety Report 16320560 (Version 1)
Quarter: 2019Q2

REPORT INFORMATION
  Report Type: Spontaneous
  Country: US (occurrence: US)
  Receive Date: 20190516
  Receipt Date: 20190516
  Transmission Date: 20190711
  Serious: Yes (Other)
  Sender: FDA-Public Use
  Company Number: US-BAUSCH-BL-2019-014259

PATIENT
  Age: 13 Year
  Sex: Male

DRUGS (4)
  1. ALBUTEROL. [Suspect]
     Active Substance: ALBUTEROL
     Dosage: CONTINUOUS TREATMENT
     Route: 065
  2. ALBUTEROL. [Suspect]
     Active Substance: ALBUTEROL
     Indication: ASTHMA
     Dosage: NEBULIZATIONS
     Route: 065
  3. METHYLPREDNISOLONE. [Concomitant]
     Active Substance: METHYLPREDNISOLONE
     Indication: ASTHMA
     Route: 042
  4. ALBUTEROL. [Suspect]
     Active Substance: ALBUTEROL
     Dosage: WEANED TO Q2-4-HOUR TREATMENTS
     Route: 065

REACTIONS (1)
  - Lactic acidosis [Recovering/Resolving]
